FAERS Safety Report 8817598 (Version 3)
Quarter: 2014Q2

REPORT INFORMATION
  Report Type: Spontaneous
  Country: US (occurrence: US)
  Receive Date: 20121001
  Receipt Date: 20140507
  Transmission Date: 20141212
  Serious: Yes (Hospitalization, Other)
  Sender: FDA-Public Use
  Company Number: US-BAYER-2012-099529

PATIENT
  Age: 32 Year
  Sex: Female
  Weight: 77.1 kg

DRUGS (4)
  1. YAZ [Suspect]
     Indication: CONTRACEPTION
     Dosage: UNK
     Dates: start: 200401, end: 200806
  2. YAZ [Suspect]
     Indication: CONTRACEPTION
     Dosage: UNK
     Dates: start: 1999
  3. YASMIN [Suspect]
     Dosage: UNK
     Dates: start: 200401, end: 200806
  4. YASMIN [Suspect]
     Dosage: UNK
     Dates: start: 1999

REACTIONS (9)
  - Cholecystitis chronic [None]
  - Cholecystectomy [None]
  - Pain [None]
  - General physical health deterioration [None]
  - Injury [None]
  - Emotional distress [None]
  - Anhedonia [None]
  - Anxiety [None]
  - Pain [None]
